FAERS Safety Report 6006657-6 (Version None)
Quarter: 2008Q4

REPORT INFORMATION
  Report Type: 
  Country: None (occurrence: None)
  Receive Date: 20081215
  Receipt Date: 20081204
  Transmission Date: 20090506
  Serious: Yes (Hospitalization)
  Sender: FDA-Public Use
  Company Number: 2008SP024766

PATIENT
  Age: 76 Year
  Sex: Female

DRUGS (10)
  1. DIAFUSOR      (GLYCERYL TRINITRATE) (GLYCERYL TRINITRATE) [Suspect]
     Indication: MYOCARDIAL ISCHAEMIA
     Dosage: 10 MG; QD, CUT
     Route: 003
  2. LEVOTHYROXINE SODIUM [Suspect]
     Indication: HYPOTHYROIDISM
     Dosage: 125 MCG; QD;
  3. TANAKAN        (GINKGO BILOBA EXTRACT) [Suspect]
     Indication: DRUG USE FOR UNKNOWN INDICATION
     Dosage: 3 DF;QD
     Dates: end: 20041030
  4. PROZAC [Suspect]
     Indication: DEPRESSION
     Dates: end: 20041104
  5. PRITOR         (TELMISARTAN) (TELMISARTAN) [Suspect]
     Indication: ESSENTIAL HYPERTENSION
     Dosage: 1 DF; QD
  6. PHENOBARBITAL TAB [Suspect]
     Indication: THYROIDITIS
     Dosage: 1 DF; QD;
  7. KARDEGIC [Concomitant]
  8. OXEOL [Concomitant]
  9. SYMBICORT [Concomitant]
  10. ENDOTELON [Concomitant]

REACTIONS (7)
  - ANTINEUTROPHIL CYTOPLASMIC ANTIBODY POSITIVE [None]
  - ARTHRALGIA [None]
  - HAEMATURIA [None]
  - LEUKOCYTOCLASTIC VASCULITIS [None]
  - PETECHIAE [None]
  - PROTEINURIA [None]
  - RENAL INJURY [None]
